FAERS Safety Report 15761763 (Version 1)
Quarter: 2018Q4

REPORT INFORMATION
  Report Type: Spontaneous
  Country: US (occurrence: US)
  Receive Date: 20181226
  Receipt Date: 20181226
  Transmission Date: 20190205
  Serious: Yes (Other)
  Sender: FDA-Public Use
  Company Number: None

PATIENT
  Age: 60 Year
  Sex: Female
  Weight: 65.5 kg

DRUGS (8)
  1. KLOR-CON/EF [Concomitant]
     Active Substance: POTASSIUM BICARBONATE
  2. FISH OIL PEARLS [Concomitant]
  3. ALPRAZOLAM. [Concomitant]
     Active Substance: ALPRAZOLAM
  4. LOMOTIL [Concomitant]
     Active Substance: ATROPINE SULFATE\DIPHENOXYLATE HYDROCHLORIDE
  5. METOPROLOL TARTRATE. [Concomitant]
     Active Substance: METOPROLOL TARTRATE
  6. CALCIUM [Concomitant]
     Active Substance: CALCIUM
  7. CAPECITABINE 500 MG TABLET [Suspect]
     Active Substance: CAPECITABINE
     Indication: COLON CANCER
     Route: 048
     Dates: start: 20180927
  8. LIDOCAINE-PRILOCAINE [Concomitant]
     Active Substance: LIDOCAINE\PRILOCAINE

REACTIONS (1)
  - Disease progression [None]
